FAERS Safety Report 20151909 (Version 2)
Quarter: 2021Q4

REPORT INFORMATION
  Report Type: Report from Study
  Country: US (occurrence: US)
  Receive Date: 20211206
  Receipt Date: 20211210
  Transmission Date: 20220303
  Serious: Yes (Hospitalization, Other)
  Sender: FDA-Public Use
  Company Number: US-PFIZER INC-2021581651

PATIENT
  Age: 62 Year
  Sex: Female

DRUGS (4)
  1. IBRANCE [Suspect]
     Active Substance: PALBOCICLIB
     Indication: Breast cancer female
     Dosage: 100 MG, CYCLIC (DAILY 21 DAYS THEN 7 DAYS OFF)
     Route: 048
     Dates: start: 20210511, end: 20210609
  2. IBRANCE [Suspect]
     Active Substance: PALBOCICLIB
     Dosage: 125 MG, CYCLIC (DAILY 21 DAYS THEN 7 DAYS OFF)
     Route: 048
     Dates: start: 20210616, end: 2021
  3. IBRANCE [Suspect]
     Active Substance: PALBOCICLIB
     Dosage: 100 MG, CYCLIC (DAILY FOR 21 DAY ON, 7 DAYS OFF)
     Route: 048
     Dates: start: 2021, end: 2021
  4. ANASTROZOLE [Concomitant]
     Active Substance: ANASTROZOLE
     Dosage: UNK, DAILY

REACTIONS (21)
  - Pleural effusion [Unknown]
  - Pneumonia [Recovering/Resolving]
  - Ascites [Unknown]
  - Eating disorder [Unknown]
  - Fatigue [Not Recovered/Not Resolved]
  - Decreased appetite [Unknown]
  - White blood cell count decreased [Not Recovered/Not Resolved]
  - Full blood count abnormal [Unknown]
  - Photophobia [Unknown]
  - Back pain [Unknown]
  - Muscular weakness [Not Recovered/Not Resolved]
  - Dyspnoea [Recovering/Resolving]
  - Peripheral swelling [Unknown]
  - Breast swelling [Unknown]
  - Axillary pain [Unknown]
  - Breast pain [Unknown]
  - Somnolence [Unknown]
  - Weight increased [Unknown]
  - Ageusia [Unknown]
  - Red blood cell count decreased [Unknown]
  - Blood potassium decreased [Unknown]

NARRATIVE: CASE EVENT DATE: 20210101
